FAERS Safety Report 10171970 (Version 1)
Quarter: 2014Q2

REPORT INFORMATION
  Report Type: Spontaneous
  Country: US (occurrence: US)
  Receive Date: 20140515
  Receipt Date: 20140515
  Transmission Date: 20141212
  Serious: Yes (Other)
  Sender: FDA-Public Use
  Company Number: US-PFIZER INC-2014131469

PATIENT
  Age: 41 Year
  Sex: Female
  Weight: 69.4 kg

DRUGS (1)
  1. NITROSTAT [Suspect]
     Indication: ANGINA PECTORIS
     Dosage: 0.4 MG, 1X/DAY
     Route: 048
     Dates: start: 1996

REACTIONS (1)
  - Cardiac disorder [Unknown]
